FAERS Safety Report 8918076 (Version 3)
Quarter: 2013Q1

REPORT INFORMATION
  Report Type: Spontaneous
  Country: US (occurrence: US)
  Receive Date: 20121120
  Receipt Date: 20130104
  Transmission Date: 20140127
  Serious: Yes (Hospitalization, Other)
  Sender: FDA-Public Use
  Company Number: US-009507513-1211USA005404

PATIENT
  Age: 61 None
  Sex: Female

DRUGS (8)
  1. VICTRELIS [Suspect]
     Indication: HEPATITIS C
     Dosage: UNK
     Dates: start: 20121102, end: 20121209
  2. VICTRELIS [Suspect]
     Dosage: UNK
     Dates: start: 20121221
  3. PEG-INTRON [Suspect]
     Indication: HEPATITIS C
     Dosage: UNK
     Dates: start: 20121005, end: 20121209
  4. PEG-INTRON [Suspect]
     Dosage: UNK
     Dates: start: 20121221
  5. RIBAVIRIN [Suspect]
     Indication: HEPATITIS C
     Dosage: UNK
     Dates: start: 20060501, end: 20070401
  6. RIBAVIRIN [Suspect]
     Dosage: UNK
     Route: 048
     Dates: start: 20121005, end: 20121209
  7. RIBAVIRIN [Suspect]
     Dosage: UNK
     Dates: start: 20121221
  8. PEGASYS [Concomitant]
     Indication: HEPATITIS C
     Dosage: UNK
     Dates: start: 20060501, end: 20070401

REACTIONS (19)
  - Bronchitis [Unknown]
  - Haemoglobin decreased [Unknown]
  - Hepatitis C [Unknown]
  - Dry mouth [Unknown]
  - Dysgeusia [Unknown]
  - Fatigue [Unknown]
  - Nausea [Unknown]
  - Headache [Unknown]
  - Dyspnoea [Unknown]
  - Fatigue [Unknown]
  - Cough [Unknown]
  - Pancytopenia [Unknown]
  - Anaemia [Unknown]
  - Thrombocytopenia [Unknown]
  - Leukopenia [Unknown]
  - Dyspnoea [Unknown]
  - Cough [Unknown]
  - Fatigue [Unknown]
  - White blood cell count decreased [Unknown]
